FAERS Safety Report 9159728 (Version 1)
Quarter: 2013Q1

REPORT INFORMATION
  Report Type: Spontaneous
  Country: US (occurrence: None)
  Receive Date: 20130220
  Receipt Date: 20130220
  Transmission Date: 20140127
  Serious: Yes (Hospitalization)
  Sender: FDA-Public Use
  Company Number: SP06402

PATIENT
  Age: 63 Year
  Sex: Male

DRUGS (1)
  1. APRISO [Suspect]
     Indication: CROHN^S DISEASE
     Dosage: 1 CAPSULE PER DAY.
     Route: 048
     Dates: start: 2011

REACTIONS (3)
  - Skin ulcer [None]
  - Impaired healing [None]
  - Leg amputation [None]
